FAERS Safety Report 24784022 (Version 6)
Quarter: 2025Q1

REPORT INFORMATION
  Report Type: Spontaneous
  Country: JP (occurrence: JP)
  Receive Date: 20241227
  Receipt Date: 20250331
  Transmission Date: 20250408
  Serious: Yes (Death, Other)
  Sender: APELLIS PHARMACEUTICALS
  Company Number: JP-BIOVITRUM-2024-JP-016411

PATIENT
  Weight: 44 kg

DRUGS (2)
  1. EMPAVELI [Suspect]
     Active Substance: PEGCETACOPLAN
     Indication: Paroxysmal nocturnal haemoglobinuria
     Dosage: TWICE/WEEK
     Route: 058
     Dates: start: 20240712, end: 20250111
  2. URSO [Concomitant]
     Active Substance: URSODIOL
     Indication: Prophylaxis
     Route: 048
     Dates: end: 20250111

REACTIONS (3)
  - Interstitial lung disease [Fatal]
  - Bone marrow failure [Fatal]
  - Hepatocellular carcinoma [Not Recovered/Not Resolved]

NARRATIVE: CASE EVENT DATE: 20241206
